FAERS Safety Report 11467519 (Version 3)
Quarter: 2015Q4

REPORT INFORMATION
  Report Type: Report from Study
  Country: BR (occurrence: BR)
  Receive Date: 20150908
  Receipt Date: 20151125
  Transmission Date: 20160304
  Serious: No
  Sender: FDA-Public Use
  Company Number: PHHY2015BR107930

PATIENT
  Sex: Female
  Weight: 50 kg

DRUGS (1)
  1. TASIGNA [Suspect]
     Active Substance: NILOTINIB
     Indication: CHRONIC MYELOID LEUKAEMIA
     Dosage: 2 DF (OF 200 MG), BID (IN THE MORNING AND AT NIGHT)
     Route: 048
     Dates: start: 2015

REACTIONS (7)
  - Alopecia [Recovering/Resolving]
  - Mass [Recovering/Resolving]
  - Weight increased [Unknown]
  - Dry skin [Recovering/Resolving]
  - Pruritus [Unknown]
  - Drug hypersensitivity [Unknown]
  - Papule [Recovering/Resolving]
